FAERS Safety Report 5960337-1 (Version None)
Quarter: 2008Q4

REPORT INFORMATION
  Report Type: 
  Country: None (occurrence: None)
  Receive Date: 20081118
  Receipt Date: 20081106
  Transmission Date: 20090506
  Serious: Yes (Disabling)
  Sender: FDA-Public Use
  Company Number: 004892

PATIENT
  Age: 40 Year
  Sex: Female

DRUGS (2)
  1. PLETAL [Suspect]
     Dosage: 50 MG, BID ORAL
     Route: 048
     Dates: start: 20080813, end: 20080828
  2. CATACLOT (OZAGREL SODIUM) INJECTION [Concomitant]

REACTIONS (1)
  - HAEMORRHAGIC INFARCTION [None]
